FAERS Safety Report 4353707-9 (Version None)
Quarter: 2004Q2

REPORT INFORMATION
  Report Type: 
  Country: None (occurrence: None)
  Receive Date: 20040430
  Receipt Date: 20040420
  Transmission Date: 20050107
  Serious: Yes (Death)
  Sender: FDA-Public Use
  Company Number: GB-JNJFOC-20040404261

PATIENT
  Age: 74 Year
  Weight: 46 kg

DRUGS (5)
  1. REMICADE [Suspect]
     Indication: RHEUMATOID ARTHRITIS
     Dosage: 10 MG/ML, INTRAVENUS
     Route: 042
     Dates: start: 20030609, end: 20031220
  2. METHOTREXATE [Concomitant]
  3. PREDNISOLONE [Concomitant]
  4. GLICLAZIDE (GLICLAZIDE) [Concomitant]
  5. RAMIPRIL [Concomitant]

REACTIONS (3)
  - BRONCHOPNEUMONIA [None]
  - DISSEMINATED TUBERCULOSIS [None]
  - GENERAL PHYSICAL HEALTH DETERIORATION [None]
